FAERS Safety Report 14923392 (Version 2)
Quarter: 2018Q4

REPORT INFORMATION
  Report Type: Spontaneous
  Country: JP (occurrence: JP)
  Receive Date: 20180522
  Receipt Date: 20181213
  Transmission Date: 20190204
  Serious: Yes (Death, Other)
  Sender: FDA-Public Use
  Company Number: JP-BAYER-2018-092706

PATIENT
  Age: 72 Year
  Sex: Male
  Weight: 74 kg

DRUGS (6)
  1. ANFLAVATE [Concomitant]
     Active Substance: BETAMETHASONE BUTYRATE PROPIONATE
     Dosage: DAILY DOSE 5 G
     Route: 062
     Dates: start: 20170224, end: 20180509
  2. STIVARGA [Suspect]
     Active Substance: REGORAFENIB
     Indication: HEPATOCELLULAR CARCINOMA
     Dosage: 120 MG, QD
     Route: 048
     Dates: start: 20170906, end: 20180509
  3. ZINC. [Concomitant]
     Active Substance: ZINC
     Dosage: DAILY DOSE 50 MG
     Route: 048
     Dates: start: 20180314, end: 20180509
  4. HARNAL [Concomitant]
     Active Substance: TAMSULOSIN HYDROCHLORIDE
     Dosage: DAILY DOSE .2 MG
     Route: 048
     Dates: start: 20180124, end: 20180509
  5. ADALAT CC [Concomitant]
     Active Substance: NIFEDIPINE
     Dosage: DAILY DOSE 40 MG
     Route: 048
     Dates: start: 20180131, end: 20180509
  6. URSO [URSODEOXYCHOLIC ACID] [Concomitant]
     Dosage: DAILY DOSE 600 MG
     Route: 048
     Dates: start: 20180131, end: 20180509

REACTIONS (4)
  - Hepatocellular carcinoma [None]
  - Ascites [Fatal]
  - Abdominal pain upper [Fatal]
  - Liver carcinoma ruptured [Fatal]

NARRATIVE: CASE EVENT DATE: 20180510
